FAERS Safety Report 4686327-7 (Version None)
Quarter: 2005Q2

REPORT INFORMATION
  Report Type: 
  Country: None (occurrence: None)
  Receive Date: 20050606
  Receipt Date: 20050525
  Transmission Date: 20051028
  Serious: Yes (Hospitalization)
  Sender: FDA-Public Use
  Company Number: 2005079745

PATIENT
  Sex: Male

DRUGS (1)
  1. XALATAN [Suspect]
     Indication: ILL-DEFINED DISORDER
     Dates: start: 20050501

REACTIONS (3)
  - LABYRINTHITIS [None]
  - NYSTAGMUS [None]
  - WHEELCHAIR USER [None]
